FAERS Safety Report 6170260-8 (Version None)
Quarter: 2009Q2

REPORT INFORMATION
  Report Type: 
  Country: None (occurrence: None)
  Receive Date: 20090428
  Receipt Date: 20090417
  Transmission Date: 20091009
  Serious: No
  Sender: FDA-Public Use
  Company Number: US-ASTRAZENECA-2009UW09716

PATIENT
  Sex: Female

DRUGS (1)
  1. CASODEX [Suspect]
     Route: 048

REACTIONS (2)
  - ACCIDENTAL EXPOSURE [None]
  - DRUG EXPOSURE DURING PREGNANCY [None]
